FAERS Safety Report 7922304-8 (Version None)
Quarter: 2011Q4

REPORT INFORMATION
  Report Type: 
  Country: None (occurrence: None)
  Receive Date: 20111117
  Receipt Date: 20110118
  Transmission Date: 20120403
  Serious: No
  Sender: FDA-Public Use
  Company Number: US-AMGEN-USASP2011003205

PATIENT
  Age: 60 Year
  Sex: Female

DRUGS (4)
  1. ENBREL [Suspect]
     Indication: PSORIATIC ARTHROPATHY
     Dosage: 50 MG, UNK
     Dates: start: 20020101, end: 20070101
  2. ENBREL [Suspect]
     Indication: PSORIASIS
     Dosage: 50 MG, UNK
     Dates: start: 20090101
  3. REMICADE [Concomitant]
     Dosage: UNK
     Dates: start: 20080101, end: 20090101
  4. HUMIRA [Concomitant]
     Dosage: UNK
     Dates: start: 20070101, end: 20080101

REACTIONS (3)
  - DRUG INEFFECTIVE [None]
  - SINUSITIS [None]
  - DRY SKIN [None]
